FAERS Safety Report 23507679 (Version 1)
Quarter: 2024Q1

REPORT INFORMATION
  Report Type: Spontaneous
  Country: US (occurrence: US)
  Receive Date: 20240209
  Receipt Date: 20240209
  Transmission Date: 20240410
  Serious: No
  Sender: FDA-Public Use
  Company Number: US-Amarin Pharma  Inc-2023AMR000474

PATIENT
  Age: 83 Year
  Sex: Female

DRUGS (7)
  1. VASCEPA [Suspect]
     Active Substance: ICOSAPENT ETHYL
     Indication: Blood triglycerides
     Route: 048
  2. ATENOLOL [Concomitant]
     Active Substance: ATENOLOL
  3. LISINOPRIL [Concomitant]
     Active Substance: LISINOPRIL
  4. HYDROCHLOROTHIAZIDE [Concomitant]
     Active Substance: HYDROCHLOROTHIAZIDE
  5. TRICOR [Concomitant]
     Active Substance: FENOFIBRATE
     Indication: Blood cholesterol
  6. TRICOR [Concomitant]
     Active Substance: FENOFIBRATE
     Indication: Blood triglycerides
  7. PROCARDIA [Concomitant]
     Active Substance: NIFEDIPINE
     Indication: Hypertension

REACTIONS (3)
  - Eructation [Recovered/Resolved]
  - Poor quality product administered [Unknown]
  - Product odour abnormal [Unknown]
